FAERS Safety Report 25846136 (Version 2)
Quarter: 2025Q4

REPORT INFORMATION
  Report Type: Spontaneous
  Country: US (occurrence: UM)
  Receive Date: 20250925
  Receipt Date: 20251003
  Transmission Date: 20260118
  Serious: No
  Sender: ROCHE
  Company Number: US-ROCHE-10000392677

PATIENT
  Sex: Female

DRUGS (2)
  1. XOLAIR PFS [Suspect]
     Active Substance: OMALIZUMAB
     Indication: Urticaria
     Route: 058
     Dates: start: 20250107
  2. XOLAIR PFS [Suspect]
     Active Substance: OMALIZUMAB
     Route: 065
     Dates: start: 20250409

REACTIONS (1)
  - Urticaria [Unknown]
